FAERS Safety Report 18456805 (Version 2)
Quarter: 2020Q4

REPORT INFORMATION
  Report Type: Report from Study
  Country: US (occurrence: US)
  Receive Date: 20201103
  Receipt Date: 20201104
  Transmission Date: 20210114
  Serious: No
  Sender: FDA-Public Use
  Company Number: US-JNJFOC-20201038622

PATIENT
  Sex: Female

DRUGS (2)
  1. STELARA [Suspect]
     Active Substance: USTEKINUMAB
  2. STELARA [Suspect]
     Active Substance: USTEKINUMAB
     Indication: CROHN^S DISEASE
     Route: 058

REACTIONS (6)
  - Eating disorder symptom [Unknown]
  - Therapeutic product effect decreased [Unknown]
  - Decreased appetite [Unknown]
  - Hepatic enzyme increased [Unknown]
  - Abdominal distension [Unknown]
  - Weight increased [Unknown]
